FAERS Safety Report 24647089 (Version 1)
Quarter: 2024Q4

REPORT INFORMATION
  Report Type: Spontaneous
  Country: FR (occurrence: FR)
  Receive Date: 20241121
  Receipt Date: 20241121
  Transmission Date: 20250115
  Serious: Yes (Death, Life-Threatening, Hospitalization)
  Sender: ACCORD
  Company Number: FR-MLMSERVICE-20241024-PI238099-00218-1

PATIENT
  Age: 6 Decade
  Sex: Male

DRUGS (4)
  1. METHOTREXATE [Suspect]
     Active Substance: METHOTREXATE
     Indication: Nervous system disorder prophylaxis
     Dosage: HIGH-DOSE
  2. PEMBROLIZUMAB [Concomitant]
     Active Substance: PEMBROLIZUMAB
     Indication: Angiocentric lymphoma
  3. PEMBROLIZUMAB [Concomitant]
     Active Substance: PEMBROLIZUMAB
     Indication: Metastases to meninges
  4. METHOTREXATE [Suspect]
     Active Substance: METHOTREXATE
     Indication: Angiocentric lymphoma
     Dosage: HIGH-DOSE

REACTIONS (4)
  - Subdural haematoma [Unknown]
  - Cerebral mass effect [Unknown]
  - Status epilepticus [Fatal]
  - Off label use [Unknown]
